FAERS Safety Report 5196491-1 (Version None)
Quarter: 2006Q4

REPORT INFORMATION
  Report Type: 
  Country: None (occurrence: None)
  Receive Date: 20061227
  Receipt Date: 20061219
  Transmission Date: 20070319
  Serious: Yes (Other)
  Sender: FDA-Public Use
  Company Number: 2006JP004284

PATIENT
  Age: 84 Year
  Sex: Female

DRUGS (10)
  1. VESICARE [Suspect]
     Indication: DYSURIA
     Dosage: 5 MG, UID/QD, ORAL
     Route: 048
     Dates: start: 20060823
  2. ALLOPURINOL [Concomitant]
  3. LASIX (FUROSEMIDE SODIUM) TABLET [Concomitant]
  4. EUGLUCON TABLET [Concomitant]
  5. BASEN (VOGLIBOSE) TABLET [Concomitant]
  6. SUCRALFATE [Concomitant]
  7. PURSENNID (SENNOSIDE A+B CALCIUM) TABLET [Concomitant]
  8. ZOLPIDEM TARTRATE [Concomitant]
  9. LOXONIN (LOXOPROFEN SODIUM) TABLET [Concomitant]
  10. NORVASC [Concomitant]

REACTIONS (3)
  - CYSTITIS NONINFECTIVE [None]
  - HAEMATURIA [None]
  - URINARY BLADDER RUPTURE [None]
